FAERS Safety Report 17655710 (Version 2)
Quarter: 2020Q3

REPORT INFORMATION
  Report Type: Report from Study
  Country: US (occurrence: US)
  Receive Date: 20200410
  Receipt Date: 20200820
  Transmission Date: 20201102
  Serious: Yes (Death)
  Sender: FDA-Public Use
  Company Number: US-PFIZER INC-2020146513

PATIENT

DRUGS (5)
  1. THIOTEPA. [Suspect]
     Active Substance: THIOTEPA
     Indication: CENTRAL NERVOUS SYSTEM LYMPHOMA
     Dosage: 250 MG/M2, CYCLIC  (DAILY FOR 3 DOSES ON DAYS ?9 TO ?7)
  2. MESNA. [Concomitant]
     Active Substance: MESNA
     Dosage: UNK
  3. PHENYTOIN. [Concomitant]
     Active Substance: PHENYTOIN
     Indication: SEIZURE PROPHYLAXIS
     Dosage: 300 MG, DAILY, ON DAYS?7 TO ?2.
  4. CYCLOPHOSPHAMIDE. [Suspect]
     Active Substance: CYCLOPHOSPHAMIDE
     Indication: CENTRAL NERVOUS SYSTEM LYMPHOMA
     Dosage: 60 MG/KG, CYCLIC (DAILY FOR 2 DOSES ON DAYS ?3 AND ?2)
  5. BUSULFAN. [Suspect]
     Active Substance: BUSULFAN
     Indication: CENTRAL NERVOUS SYSTEM LYMPHOMA
     Dosage: 0.8 MG/KG, CYCLIC  (EVERY 6 HOURS FOR 12 DOSES ON DAYS ?6 TO ?4)

REACTIONS (1)
  - Sepsis [Fatal]
